FAERS Safety Report 22259152 (Version 1)
Quarter: 2023Q2

REPORT INFORMATION
  Report Type: Spontaneous
  Country: US (occurrence: US)
  Receive Date: 20230427
  Receipt Date: 20230427
  Transmission Date: 20230721
  Serious: Yes (Death, Hospitalization)
  Sender: FDA-Public Use
  Company Number: US-PFIZER INC-PV202300072553

PATIENT
  Age: 79 Year
  Sex: Male

DRUGS (8)
  1. VANCOMYCIN HYDROCHLORIDE [Suspect]
     Active Substance: VANCOMYCIN HYDROCHLORIDE
     Indication: Anti-infective therapy
     Dosage: 1 G, DAILY
     Route: 042
  2. VANCOMYCIN HYDROCHLORIDE [Suspect]
     Active Substance: VANCOMYCIN HYDROCHLORIDE
     Indication: Human herpesvirus 6 encephalitis
  3. CEFTRIAXONE [Suspect]
     Active Substance: CEFTRIAXONE
     Indication: Anti-infective therapy
     Dosage: 2 G, 2X/DAY (EVERY 12H)
     Route: 042
  4. CEFTRIAXONE [Suspect]
     Active Substance: CEFTRIAXONE
     Indication: Human herpesvirus 6 encephalitis
  5. AMPICILLIN SODIUM [Suspect]
     Active Substance: AMPICILLIN SODIUM
     Indication: Anti-infective therapy
     Dosage: 2 G, 4X/DAY (EVERY 6H)
     Route: 042
  6. AMPICILLIN SODIUM [Suspect]
     Active Substance: AMPICILLIN SODIUM
     Indication: Human herpesvirus 6 encephalitis
  7. ACYCLOVIR [Suspect]
     Active Substance: ACYCLOVIR
     Indication: Anti-infective therapy
     Dosage: 10 MG/KG, 2X/DAY (EVERY 12H)
     Route: 042
  8. ACYCLOVIR [Suspect]
     Active Substance: ACYCLOVIR
     Indication: Human herpesvirus 6 encephalitis

REACTIONS (1)
  - Drug ineffective [Fatal]
